FAERS Safety Report 8333181-8 (Version None)
Quarter: 2012Q2

REPORT INFORMATION
  Report Type: 
  Country: None (occurrence: None)
  Receive Date: 20120503
  Receipt Date: 20120423
  Transmission Date: 20120825
  Serious: Yes (Other)
  Sender: FDA-Public Use
  Company Number: US-SANOFI-AVENTIS-2012SA023451

PATIENT
  Age: 66 Year
  Sex: Female
  Weight: 68 kg

DRUGS (22)
  1. PLAVIX [Suspect]
     Route: 048
  2. SYNTHROID [Concomitant]
  3. POTASSIUM CHLORIDE [Concomitant]
  4. CRESTOR [Concomitant]
  5. PLAVIX [Suspect]
     Indication: VASCULAR OCCLUSION
     Route: 048
     Dates: start: 20070101
  6. PLAVIX [Suspect]
     Route: 048
  7. PLAVIX [Suspect]
     Route: 048
  8. DIAZEPAM [Concomitant]
  9. THALITONE [Concomitant]
  10. TRAZODONE HCL [Concomitant]
  11. VISTARIL [Concomitant]
  12. ARICEPT [Concomitant]
  13. LOVAZA [Concomitant]
  14. LORTAB [Concomitant]
  15. COENZYME Q10 [Concomitant]
  16. PLAVIX [Suspect]
     Indication: CAROTID ARTERY OCCLUSION
     Route: 048
     Dates: start: 20070101
  17. ZYRTEC [Concomitant]
  18. ALLEGRA [Concomitant]
  19. LOPERAMIDE [Concomitant]
  20. OXYGEN [Concomitant]
  21. PLAVIX [Suspect]
     Route: 048
  22. LOTENSIN [Concomitant]

REACTIONS (4)
  - CONTUSION [None]
  - CEREBRAL ARTERY OCCLUSION [None]
  - HAEMATOCHEZIA [None]
  - UNDERDOSE [None]
